FAERS Safety Report 8316999-7 (Version None)
Quarter: 2012Q2

REPORT INFORMATION
  Report Type: 
  Country: None (occurrence: None)
  Receive Date: 20120425
  Receipt Date: 20120418
  Transmission Date: 20120825
  Serious: Yes (Hospitalization)
  Sender: FDA-Public Use
  Company Number: 2012SP017437

PATIENT
  Sex: Female
  Weight: 46 kg

DRUGS (6)
  1. ABILIFY [Concomitant]
  2. LAMOTRIGINE [Suspect]
     Indication: BIPOLAR DISORDER
     Dosage: 200 MG;PO
     Route: 048
     Dates: end: 20120325
  3. SAPHRIS [Suspect]
     Indication: BIPOLAR DISORDER
     Dosage: 5 MG;QD;SL
     Route: 060
     Dates: start: 20120301, end: 20120325
  4. PRISTIQ [Concomitant]
  5. OLANZAPINE [Concomitant]
  6. VALPROIC ACID [Concomitant]

REACTIONS (4)
  - CONTUSION [None]
  - IDIOSYNCRATIC DRUG REACTION [None]
  - DRUG HYPERSENSITIVITY [None]
  - MANIA [None]
